FAERS Safety Report 24664368 (Version 1)
Quarter: 2024Q4

REPORT INFORMATION
  Report Type: Spontaneous
  Country: FR (occurrence: FR)
  Receive Date: 20241126
  Receipt Date: 20241126
  Transmission Date: 20250115
  Serious: Yes (Other)
  Sender: BIOLOGICAL E. LIMITED
  Company Number: FR-BELUSA-2024BELLIT0113

PATIENT

DRUGS (1)
  1. ENOXAPARIN SODIUM [Suspect]
     Active Substance: ENOXAPARIN SODIUM
     Indication: Thrombosis prophylaxis

REACTIONS (2)
  - Adrenal cortex necrosis [Unknown]
  - Heparin-induced thrombocytopenia [Unknown]
